FAERS Safety Report 16546133 (Version 2)
Quarter: 2021Q3

REPORT INFORMATION
  Report Type: Spontaneous
  Country: US (occurrence: US)
  Receive Date: 20190709
  Receipt Date: 20210709
  Transmission Date: 20211014
  Serious: No
  Sender: FDA-Public Use
  Company Number: US-ASTELLAS-2018US033707

PATIENT
  Age: 81 Year
  Sex: Male

DRUGS (3)
  1. MYRBETRIQ [Suspect]
     Active Substance: MIRABEGRON
     Indication: INCONTINENCE
  2. MYRBETRIQ [Suspect]
     Active Substance: MIRABEGRON
     Indication: LOWER URINARY TRACT SYMPTOMS
  3. MYRBETRIQ [Suspect]
     Active Substance: MIRABEGRON
     Indication: MICTURITION URGENCY
     Route: 048
     Dates: start: 20180612, end: 20180709

REACTIONS (1)
  - Arthralgia [Recovered/Resolved]

NARRATIVE: CASE EVENT DATE: 20180709
